FAERS Safety Report 11008033 (Version 2)
Quarter: 2015Q2

REPORT INFORMATION
  Report Type: Spontaneous
  Country: US (occurrence: US)
  Receive Date: 20150410
  Receipt Date: 20150413
  Transmission Date: 20150821
  Serious: No
  Sender: FDA-Public Use
  Company Number: US-009507513-1504USA002533

PATIENT
  Age: 43 Year
  Sex: Female
  Weight: 77.98 kg

DRUGS (3)
  1. NEXPLANON [Suspect]
     Active Substance: ETONOGESTREL
     Dosage: ONE ROD 3 YEARS IN LEFT ARM
     Route: 059
     Dates: start: 20140128
  2. BIAXIN [Concomitant]
     Active Substance: CLARITHROMYCIN
  3. BACTRIM [Concomitant]
     Active Substance: SULFAMETHOXAZOLE\TRIMETHOPRIM

REACTIONS (3)
  - Atypical pneumonia [Unknown]
  - Urinary tract infection [Unknown]
  - Unintended pregnancy [Unknown]

NARRATIVE: CASE EVENT DATE: 20150331
